FAERS Safety Report 6170873-3 (Version None)
Quarter: 2009Q2

REPORT INFORMATION
  Report Type: 
  Country: None (occurrence: None)
  Receive Date: 20090427
  Receipt Date: 20090415
  Transmission Date: 20091009
  Serious: Yes (Death)
  Sender: FDA-Public Use
  Company Number: AE-2009-014

PATIENT
  Age: 61 Year
  Sex: Male
  Weight: 100 kg

DRUGS (5)
  1. METFORMIN HCL [Suspect]
     Indication: TYPE 2 DIABETES MELLITUS
     Dosage: 2550MG, QD,ORAL
     Route: 048
  2. ORNITHINE ASPARTATE [Concomitant]
  3. LACTULOSE [Concomitant]
  4. PROPRANOLOL HYDROCHLORIDE [Concomitant]
  5. TRIAMTERENE AND HYDROCHLOROTHIAZIDE [Concomitant]

REACTIONS (4)
  - ACUTE HEPATIC FAILURE [None]
  - HYPERKALAEMIA [None]
  - LACTIC ACIDOSIS [None]
  - RENAL FAILURE ACUTE [None]
